FAERS Safety Report 25935275 (Version 1)
Quarter: 2025Q4

REPORT INFORMATION
  Report Type: Spontaneous
  Country: US (occurrence: None)
  Receive Date: 20251016
  Receipt Date: 20251016
  Transmission Date: 20260117
  Serious: Yes (Other)
  Sender: FDA-CTU
  Company Number: None

PATIENT
  Age: 34 Year
  Sex: Male

DRUGS (1)
  1. HERBALS [Suspect]
     Active Substance: HERBALS

REACTIONS (4)
  - Substance use [None]
  - Drug dependence [None]
  - Physical product label issue [None]
  - Product use in unapproved indication [None]

NARRATIVE: CASE EVENT DATE: 20240810
